FAERS Safety Report 19150108 (Version 2)
Quarter: 2021Q2

REPORT INFORMATION
  Report Type: Report from Study
  Country: CA (occurrence: CA)
  Receive Date: 20210417
  Receipt Date: 20210427
  Transmission Date: 20210717
  Serious: Yes (Other)
  Sender: FDA-Public Use
  Company Number: NVSC2021CA049782

PATIENT
  Age: 57 Year
  Sex: Female

DRUGS (1)
  1. MAYZENT [Suspect]
     Active Substance: SIPONIMOD
     Indication: SECONDARY PROGRESSIVE MULTIPLE SCLEROSIS
     Dosage: UNK
     Route: 048
     Dates: start: 20210225, end: 20210413

REACTIONS (14)
  - Tinnitus [Unknown]
  - Gait disturbance [Unknown]
  - Nausea [Unknown]
  - Drug intolerance [Unknown]
  - Pain in extremity [Unknown]
  - Emotional disorder [Unknown]
  - Back pain [Unknown]
  - Neck pain [Unknown]
  - Hypoaesthesia [Unknown]
  - Limb discomfort [Unknown]
  - Vomiting [Unknown]
  - Vision blurred [Unknown]
  - Acne pustular [Unknown]
  - Multiple sclerosis [Unknown]

NARRATIVE: CASE EVENT DATE: 20210301
